FAERS Safety Report 4979211-2 (Version None)
Quarter: 2006Q2

REPORT INFORMATION
  Report Type: 
  Country: None (occurrence: None)
  Receive Date: 20060421
  Receipt Date: 20060314
  Transmission Date: 20061013
  Serious: Yes (Other)
  Sender: FDA-Public Use
  Company Number: DE-GLAXOSMITHKLINE-D0049018A

PATIENT
  Age: 30 Year
  Sex: Female
  Weight: 157 kg

DRUGS (2)
  1. LAMICTAL [Suspect]
     Dosage: 100MG TWICE PER DAY
     Route: 048
     Dates: start: 20051028, end: 20060314
  2. VALETTE [Suspect]
     Indication: CONTRACEPTION
     Dosage: 1TAB PER DAY
     Route: 048
     Dates: start: 20051101, end: 20060301

REACTIONS (3)
  - AMENORRHOEA [None]
  - BREAST PAIN [None]
  - DRUG INTERACTION [None]
